FAERS Safety Report 8512538-6 (Version None)
Quarter: 2012Q3

REPORT INFORMATION
  Report Type: 
  Country: None (occurrence: None)
  Receive Date: 20120716
  Receipt Date: 20120709
  Transmission Date: 20120928
  Serious: Yes (Hospitalization, Other)
  Sender: FDA-Public Use
  Company Number: JP-ROCHE-1061954

PATIENT
  Sex: Female
  Weight: 82 kg

DRUGS (11)
  1. PREDNISOLONE [Concomitant]
     Route: 065
     Dates: start: 20120116
  2. ADVAIR DISKUS 100/50 [Concomitant]
     Route: 065
     Dates: start: 20120105
  3. LASIX [Concomitant]
     Route: 065
  4. RABEPRAZOLE SODIUM [Concomitant]
     Route: 065
  5. MONTELUKAST SODIUM [Concomitant]
     Route: 065
  6. MEPTIN [Concomitant]
     Route: 065
  7. ZYRTEC [Concomitant]
     Route: 065
  8. UNIPHYL [Concomitant]
     Route: 065
  9. XOLAIR [Suspect]
     Indication: ASTHMA
     Route: 058
     Dates: start: 20111118, end: 20111118
  10. SYMBICORT [Concomitant]
     Route: 065
     Dates: start: 20120106
  11. ALFAROL [Concomitant]
     Route: 065
     Dates: start: 20120515

REACTIONS (3)
  - OROPHARYNGEAL DISCOMFORT [None]
  - LIP SWELLING [None]
  - ASTHMA [None]
